FAERS Safety Report 12448134 (Version 3)
Quarter: 2018Q4

REPORT INFORMATION
  Report Type: Spontaneous
  Country: US (occurrence: US)
  Receive Date: 20160608
  Receipt Date: 20181218
  Transmission Date: 20190204
  Serious: Yes (Hospitalization, Other)
  Sender: FDA-Public Use
  Company Number: US-ASTRAZENECA-2016SE59155

PATIENT
  Age: 25983 Day
  Sex: Female
  Weight: 60.8 kg

DRUGS (4)
  1. FASLODEX [Suspect]
     Active Substance: FULVESTRANT
     Indication: BREAST CANCER METASTATIC
     Route: 030
     Dates: start: 201210
  2. IBRANCE [Concomitant]
     Active Substance: PALBOCICLIB
     Indication: HEPATIC CANCER
     Dosage: 125.0MG UNKNOWN
  3. EVISTA [Concomitant]
     Active Substance: RALOXIFENE HYDROCHLORIDE
     Dates: start: 201210
  4. ANASTROZOLE. [Suspect]
     Active Substance: ANASTROZOLE
     Indication: BREAST CANCER METASTATIC
     Route: 048
     Dates: start: 201210, end: 201510

REACTIONS (18)
  - Weight abnormal [Recovered/Resolved]
  - Road traffic accident [Recovered/Resolved]
  - Hypersensitivity [Unknown]
  - Depression [Recovered/Resolved]
  - Stomatitis [Recovered/Resolved]
  - Malignant neoplasm progression [Unknown]
  - Joint dislocation [Recovered/Resolved]
  - Head injury [Recovered/Resolved]
  - Skin disorder [Recovered/Resolved]
  - Pleural effusion [Recovered/Resolved]
  - Neutropenia [Recovered/Resolved]
  - Multiple fractures [Unknown]
  - Traumatic renal injury [Recovered/Resolved]
  - Thyroid mass [Unknown]
  - Pneumonia [Unknown]
  - Mental status changes [Recovered/Resolved]
  - Hiatus hernia [Unknown]
  - Drug resistance [Unknown]

NARRATIVE: CASE EVENT DATE: 20180331
